FAERS Safety Report 7854742-6 (Version None)
Quarter: 2011Q4

REPORT INFORMATION
  Report Type: 
  Country: None (occurrence: None)
  Receive Date: 20111026
  Receipt Date: 20110822
  Transmission Date: 20120403
  Serious: No
  Sender: FDA-Public Use
  Company Number: US-MUTUAL PHARMACEUTICAL COMPANY, INC.-CLCY20110111

PATIENT
  Sex: Male
  Weight: 81.72 kg

DRUGS (4)
  1. COLCHICINE [Suspect]
     Indication: PERICARDITIS
     Route: 048
     Dates: start: 20110401, end: 20110701
  2. IBUPROFEN [Concomitant]
     Indication: PERICARDITIS
     Route: 048
     Dates: start: 20110201
  3. COLCRYS [Suspect]
     Indication: PERICARDITIS
     Route: 048
     Dates: start: 20110701, end: 20110820
  4. COLCRYS [Suspect]
     Indication: INSOMNIA

REACTIONS (5)
  - MUSCULAR WEAKNESS [None]
  - MEMORY IMPAIRMENT [None]
  - MALAISE [None]
  - OFF LABEL USE [None]
  - HEADACHE [None]
